FAERS Safety Report 7547099-1 (Version None)
Quarter: 2011Q2

REPORT INFORMATION
  Report Type: 
  Country: None (occurrence: None)
  Receive Date: 20110607
  Receipt Date: 20110601
  Transmission Date: 20111010
  Serious: Yes (Other)
  Sender: FDA-Public Use
  Company Number: 2011SP018433

PATIENT
  Age: 18 Year
  Sex: Female
  Weight: 56.6996 kg

DRUGS (1)
  1. IMPLANON [Suspect]
     Indication: CONTRACEPTION
     Dates: start: 20080101

REACTIONS (4)
  - DEVICE DISLOCATION [None]
  - VULVOVAGINAL MYCOTIC INFECTION [None]
  - LOSS OF CONSCIOUSNESS [None]
  - MENSTRUATION IRREGULAR [None]
